FAERS Safety Report 14969546 (Version 1)
Quarter: 2018Q2

REPORT INFORMATION
  Report Type: Spontaneous
  Country: NL (occurrence: NL)
  Receive Date: 20180604
  Receipt Date: 20180604
  Transmission Date: 20180711
  Serious: Yes (Hospitalization, Other)
  Sender: FDA-Public Use
  Company Number: NL-IMPAX LABORATORIES, INC-2018-IPXL-01734

PATIENT
  Age: 66 Year
  Sex: Female

DRUGS (12)
  1. DIVALPROEX SODIUM ER [Suspect]
     Active Substance: DIVALPROEX SODIUM
     Dosage: 2500 MG, DAILY
     Route: 065
  2. LITHIUM. [Suspect]
     Active Substance: LITHIUM
     Dosage: 400 MG, DAILY (DAY 90)
     Route: 065
  3. CYCLOPHOSPHAMIDE. [Suspect]
     Active Substance: CYCLOPHOSPHAMIDE
     Indication: PROTEINURIA
     Dosage: UNK
     Route: 065
  4. LITHIUM. [Suspect]
     Active Substance: LITHIUM
     Dosage: UNK,
     Route: 065
  5. CITALOPRAM [Suspect]
     Active Substance: CITALOPRAM HYDROBROMIDE
     Indication: BIPOLAR DISORDER
     Dosage: UNK
     Route: 065
  6. LITHIUM. [Suspect]
     Active Substance: LITHIUM
     Indication: BIPOLAR DISORDER
     Dosage: UNK
     Route: 065
  7. LITHIUM. [Suspect]
     Active Substance: LITHIUM
     Dosage: UNK
     Route: 065
  8. DIVALPROEX SODIUM ER [Suspect]
     Active Substance: DIVALPROEX SODIUM
     Dosage: 4000 MG, DAILY (DAY 77)
     Route: 065
  9. LITHIUM. [Suspect]
     Active Substance: LITHIUM
     Dosage: 800 MG, DAILY, AFTER 1 WEEK
     Route: 065
  10. PREDNISONE. [Concomitant]
     Active Substance: PREDNISONE
     Indication: PROTEINURIA
     Dosage: UNK
     Route: 065
  11. DIVALPROEX SODIUM ER [Suspect]
     Active Substance: DIVALPROEX SODIUM
     Indication: BIPOLAR DISORDER
     Dosage: 300 MG, DAILY (DAY1)
     Route: 065
  12. DIVALPROEX SODIUM ER [Suspect]
     Active Substance: DIVALPROEX SODIUM
     Dosage: 3000 MG, DAILY (DAY118)
     Route: 065

REACTIONS (11)
  - Drug withdrawal convulsions [Recovered/Resolved]
  - Cognitive disorder [Recovered/Resolved]
  - Prescribed overdose [Unknown]
  - Urinary retention [Unknown]
  - Infection [Unknown]
  - Delirium [Recovered/Resolved]
  - Pancytopenia [Unknown]
  - Disorientation [Recovered/Resolved]
  - Hypoalbuminaemia [Unknown]
  - Hypotension [Unknown]
  - Somnolence [Recovered/Resolved]
